FAERS Safety Report 13865731 (Version 2)
Quarter: 2017Q3

REPORT INFORMATION
  Report Type: Spontaneous
  Country: JP (occurrence: JP)
  Receive Date: 20170814
  Receipt Date: 20170911
  Transmission Date: 20171127
  Serious: Yes (Life-Threatening)
  Sender: FDA-Public Use
  Company Number: JP-BAUSCH-BL-2017-023705

PATIENT
  Age: 80 Year
  Sex: Male

DRUGS (2)
  1. SODIUM PICOSULFATE HYDRATE [Concomitant]
     Active Substance: SODIUM PICOSULFATE
     Indication: BOWEL PREPARATION
     Dates: start: 20170801, end: 20170801
  2. MOVIPREP [Suspect]
     Active Substance: ASCORBIC ACID\POLYETHYLENE GLYCOL 3350\POTASSIUM CHLORIDE\SODIUM ASCORBATE\SODIUM CHLORIDE\SODIUM SULFATE
     Indication: BOWEL PREPARATION
     Route: 048
     Dates: start: 20170802, end: 20170802

REACTIONS (6)
  - Pneumonia aspiration [Not Recovered/Not Resolved]
  - Altered state of consciousness [Recovered/Resolved]
  - Apnoea [Unknown]
  - Vomiting [Recovered/Resolved]
  - Aspiration [Unknown]
  - Medication error [Unknown]

NARRATIVE: CASE EVENT DATE: 201708
